FAERS Safety Report 6841630-7 (Version None)
Quarter: 2010Q3

REPORT INFORMATION
  Report Type: 
  Country: None (occurrence: None)
  Receive Date: 20100714
  Receipt Date: 20100503
  Transmission Date: 20110219
  Serious: Yes (Other)
  Sender: FDA-Public Use
  Company Number: US-PFIZER INC-2007054398

PATIENT
  Sex: Female
  Weight: 68.027 kg

DRUGS (5)
  1. CHANTIX [Suspect]
     Indication: SMOKING CESSATION THERAPY
     Dosage: 0.5 MG, 1X/DAY
     Route: 048
     Dates: start: 20070601
  2. ATIVAN [Concomitant]
     Indication: ANXIETY
     Dosage: 1 MG, 3X/DAY
     Route: 048
  3. TYLENOL [Concomitant]
     Indication: HEADACHE
     Dosage: 500 MG, 2X/DAY
  4. TYLENOL [Concomitant]
     Indication: BACK PAIN
  5. DOXYCYCLINE [Concomitant]
     Indication: SKIN INFECTION
     Dosage: 100 MG, 2X/DAY

REACTIONS (8)
  - AMNESIA [None]
  - ANXIETY [None]
  - CONFUSIONAL STATE [None]
  - HEADACHE [None]
  - PALPITATIONS [None]
  - PAROSMIA [None]
  - PRURITUS [None]
  - STRESS [None]
